FAERS Safety Report 11505454 (Version 1)
Quarter: 2015Q3

REPORT INFORMATION
  Report Type: Spontaneous
  Country: US (occurrence: US)
  Receive Date: 20150915
  Receipt Date: 20150915
  Transmission Date: 20151125
  Serious: No
  Sender: FDA-Public Use
  Company Number: US-ROCHE-729770

PATIENT
  Sex: Female

DRUGS (3)
  1. PEGASYS [Suspect]
     Active Substance: PEGINTERFERON ALFA-2A
     Indication: HEPATITIS C
     Dosage: FORM: PFS; OTHER INDICATION: HIV
     Route: 058
  2. RIBAVIRIN. [Suspect]
     Active Substance: RIBAVIRIN
     Indication: HEPATITIS C
     Dosage: IN DIVIDED DOSES; OTHER INDICATION: HIV
     Route: 048
  3. ATARAX [Concomitant]
     Active Substance: HYDROXYZINE\HYDROXYZINE HYDROCHLORIDE
     Route: 065

REACTIONS (8)
  - Pruritus [Unknown]
  - Weight decreased [Unknown]
  - Hunger [Unknown]
  - Fatigue [Unknown]
  - Injection site reaction [Unknown]
  - Oral pain [Unknown]
  - Stomatitis [Unknown]
  - Hypophagia [Unknown]
